FAERS Safety Report 8845150 (Version 1)
Quarter: 2012Q4

REPORT INFORMATION
  Report Type: Spontaneous
  Country: CL (occurrence: None)
  Receive Date: 20121015
  Receipt Date: 20121015
  Transmission Date: 20130627
  Serious: Yes (Hospitalization, Other)
  Sender: FDA-Public Use
  Company Number: 2012P1060685

PATIENT
  Age: 2 Month
  Sex: Male

DRUGS (1)
  1. PROPRANOLOL [Suspect]
     Indication: HEMANGIOMA
     Route: 048

REACTIONS (4)
  - Restlessness [None]
  - Euphoric mood [None]
  - Insomnia [None]
  - Overdose [None]
